FAERS Safety Report 4746434-7 (Version None)
Quarter: 2005Q3

REPORT INFORMATION
  Report Type: 
  Country: None (occurrence: None)
  Receive Date: 20050815
  Receipt Date: 20050803
  Transmission Date: 20060218
  Serious: Yes (Hospitalization)
  Sender: FDA-Public Use
  Company Number: DE_050716372

PATIENT
  Age: 26 Year
  Sex: Male

DRUGS (1)
  1. ZYPREXA [Suspect]
     Indication: PSYCHOTIC DISORDER
     Dosage: 20 MG DAY
     Route: 048
     Dates: start: 20030601, end: 20040901

REACTIONS (1)
  - GRANULOCYTOPENIA [None]
